FAERS Safety Report 23219590 (Version 1)
Quarter: 2023Q4

REPORT INFORMATION
  Report Type: Spontaneous
  Country: US (occurrence: US)
  Receive Date: 20231122
  Receipt Date: 20231122
  Transmission Date: 20240110
  Serious: No
  Sender: FDA-Public Use
  Company Number: US-ALKERMES INC.-ALK-2023-004371

PATIENT
  Age: 42 Year
  Sex: Female

DRUGS (1)
  1. LYBALVI [Suspect]
     Active Substance: OLANZAPINE\SAMIDORPHAN L-MALATE
     Indication: Bipolar I disorder
     Dosage: 10/10 MILLIGRAM, QD
     Route: 048
     Dates: start: 202201, end: 202206

REACTIONS (4)
  - Hyperhidrosis [Unknown]
  - Increased appetite [Unknown]
  - Weight increased [Unknown]
  - Somnolence [Unknown]
